FAERS Safety Report 15534640 (Version 1)
Quarter: 2018Q4

REPORT INFORMATION
  Report Type: Report from Study
  Country: GB (occurrence: GB)
  Receive Date: 20181022
  Receipt Date: 20181022
  Transmission Date: 20190205
  Serious: Yes (Hospitalization)
  Sender: FDA-Public Use
  Company Number: GB-AMGEN-GBRSL2018125144

PATIENT
  Sex: Male

DRUGS (15)
  1. FULTIUM D3 [Concomitant]
     Active Substance: CHOLECALCIFEROL
     Dosage: 20000 UNIT, 2 TIMES/WK
     Route: 048
  2. FOLIC ACID. [Concomitant]
     Active Substance: FOLIC ACID
     Dosage: 5 MG, QD 8AM
     Route: 048
  3. FUROSEMIDE. [Concomitant]
     Active Substance: FUROSEMIDE
     Dosage: 40 MG, QD 8AM
     Route: 048
  4. AMLODIPINE [Concomitant]
     Active Substance: AMLODIPINE BESYLATE
     Dosage: 5 MG, QD AT 8AM
     Route: 048
  5. ATORVASTATIN [Concomitant]
     Active Substance: ATORVASTATIN
     Dosage: 20 MG, QD AT 10PM
     Route: 048
  6. CARBIMAZOLE [Concomitant]
     Active Substance: CARBIMAZOLE
     Dosage: 5 MG, Q3WK MON,WED,FRI AT 8AM
     Route: 048
  7. RANITIDINE. [Concomitant]
     Active Substance: RANITIDINE
     Dosage: 150 MG, BID 8AM AND 8PM)
     Route: 048
  8. OCTREOTIDE. [Suspect]
     Active Substance: OCTREOTIDE
     Indication: PRODUCT USED FOR UNKNOWN INDICATION
     Dosage: UNK
     Route: 065
  9. SANDOCAL [Concomitant]
     Dosage: 1 G, BID ( 8AM AND 8PM)
     Route: 048
  10. DOXAZOSIN [Concomitant]
     Active Substance: DOXAZOSIN\DOXAZOSIN MESYLATE
     Dosage: 4 MG, QD 8PM
     Route: 048
  11. SODIUM BICARBONATE. [Concomitant]
     Active Substance: SODIUM BICARBONATE
     Dosage: 1000 MG, TID 8AM,2PM, 10PM
     Route: 048
  12. HUMALOG MIX75/25 [Concomitant]
     Active Substance: INSULIN LISPRO
     Indication: TYPE 2 DIABETES MELLITUS
     Dosage: 25 UNK, UNK
  13. ARANESP [Suspect]
     Active Substance: DARBEPOETIN ALFA
     Indication: PRODUCT USED FOR UNKNOWN INDICATION
     Dosage: UNK
     Route: 065
  14. CYCLIZINE [Concomitant]
     Active Substance: CYCLIZINE
     Dosage: 50 MG, TID
     Route: 048
  15. DOXAZOSIN [Concomitant]
     Active Substance: DOXAZOSIN\DOXAZOSIN MESYLATE
     Dosage: 8 MG, QD 8AM

REACTIONS (1)
  - Hypoglycaemia [Unknown]
